FAERS Safety Report 16976526 (Version 2)
Quarter: 2019Q4

REPORT INFORMATION
  Report Type: Spontaneous
  Country: FR (occurrence: FR)
  Receive Date: 20191030
  Receipt Date: 20191203
  Transmission Date: 20200122
  Serious: Yes (Life-Threatening)
  Sender: FDA-Public Use
  Company Number: FR-EISAI MEDICAL RESEARCH-EC-2019-064187

PATIENT
  Age: 82 Year
  Sex: Male
  Weight: 63 kg

DRUGS (3)
  1. LOXEN [Concomitant]
     Indication: HYPERTENSION
     Route: 048
     Dates: start: 2018
  2. LENVIMA [Suspect]
     Active Substance: LENVATINIB
     Indication: THYROID CANCER METASTATIC
     Route: 048
     Dates: start: 20160613, end: 201910
  3. L-THYROXIN [Concomitant]
     Active Substance: LEVOTHYROXINE SODIUM
     Indication: THYROID HORMONE REPLACEMENT THERAPY
     Route: 048
     Dates: start: 2018

REACTIONS (1)
  - Acute myeloid leukaemia [Recovering/Resolving]

NARRATIVE: CASE EVENT DATE: 201910
